FAERS Safety Report 8650211 (Version 2)
Quarter: 2012Q4

REPORT INFORMATION
  Report Type: 
  Country: US (occurrence: US)
  Receive Date: 20120705
  Receipt Date: 20121126
  Transmission Date: 20130627
  Serious: Yes (Hospitalization, Other)
  Sender: FDA-Public Use
  Company Number: US-PFIZER INC-2012158137

PATIENT
  Age: 37 Year
  Sex: Male

DRUGS (1)
  1. CHANTIX [Suspect]
     Indication: SMOKING CESSATION THERAPY
     Dosage: 1mg continuing pack
     Dates: start: 20080820, end: 200908

REACTIONS (4)
  - Suicide attempt [Unknown]
  - Depression [Recovered/Resolved]
  - Paranoia [Unknown]
  - Hostility [Unknown]
